APPROVED DRUG PRODUCT: NAPROXEN SODIUM
Active Ingredient: NAPROXEN SODIUM
Strength: EQ 250MG BASE
Dosage Form/Route: TABLET;ORAL
Application: A074455 | Product #001
Applicant: WATSON LABORATORIES INC
Approved: May 31, 1995 | RLD: No | RS: No | Type: DISCN